FAERS Safety Report 7208720-0 (Version None)
Quarter: 2011Q1

REPORT INFORMATION
  Report Type: 
  Country: None (occurrence: None)
  Receive Date: 20110104
  Receipt Date: 20101228
  Transmission Date: 20110831
  Serious: Yes (Hospitalization)
  Sender: FDA-Public Use
  Company Number: US-B.I. PHARMACEUTICALS,INC./RIDGEFIELD-2010-BP-15282BP

PATIENT
  Sex: Male

DRUGS (10)
  1. PRADAXA [Suspect]
     Indication: ATRIAL FIBRILLATION
  2. BUPROPION [Concomitant]
     Indication: SMOKING CESSATION THERAPY
     Dates: start: 20101201
  3. ASPIRIN [Concomitant]
     Indication: PROPHYLAXIS
  4. HYDRALAZINE [Concomitant]
     Indication: HYPERTENSION
     Dates: start: 20101201
  5. SYMBICORT [Concomitant]
     Indication: CHRONIC OBSTRUCTIVE PULMONARY DISEASE
     Dates: start: 20101201
  6. AMLODIPINE [Suspect]
     Indication: HYPERTENSION
     Dates: start: 20101201
  7. ISOSORBIDE DINITRATE [Suspect]
     Indication: ANGINA PECTORIS
     Dates: start: 20101201
  8. LACTINEX [Concomitant]
     Indication: PROPHYLAXIS
  9. PRADAXA [Suspect]
     Indication: CEREBROVASCULAR ACCIDENT
     Dosage: 300 MG
     Route: 048
     Dates: start: 20101201
  10. ALBUTEROL [Concomitant]
     Indication: CHRONIC OBSTRUCTIVE PULMONARY DISEASE
     Dates: start: 20101201

REACTIONS (5)
  - CONSTIPATION [None]
  - DIZZINESS [None]
  - OEDEMA PERIPHERAL [None]
  - RECTAL HAEMORRHAGE [None]
  - PNEUMONIA [None]
